FAERS Safety Report 20618035 (Version 1)
Quarter: 2022Q1

REPORT INFORMATION
  Report Type: Spontaneous
  Country: PR (occurrence: PR)
  Receive Date: 20220321
  Receipt Date: 20220321
  Transmission Date: 20220423
  Serious: No
  Sender: FDA-Public Use
  Company Number: PR-PFIZER INC-2021709617

PATIENT
  Age: 45 Year
  Sex: Female
  Weight: 116.1 kg

DRUGS (1)
  1. BOSULIF [Suspect]
     Active Substance: BOSUTINIB MONOHYDRATE
     Indication: Myeloid leukaemia
     Dosage: 400 MG, DAILY
     Route: 048
     Dates: start: 20210317

REACTIONS (2)
  - Abdominal pain upper [Unknown]
  - Oedema peripheral [Unknown]

NARRATIVE: CASE EVENT DATE: 20210614
